FAERS Safety Report 6927108-0 (Version None)
Quarter: 2010Q3

REPORT INFORMATION
  Report Type: 
  Country: None (occurrence: None)
  Receive Date: 20100816
  Receipt Date: 20100729
  Transmission Date: 20110219
  Serious: No
  Sender: FDA-Public Use
  Company Number: US-ABBOTT-10P-163-0661311-00

PATIENT
  Sex: Male
  Weight: 85.352 kg

DRUGS (6)
  1. SIMCOR [Suspect]
     Indication: BLOOD CHOLESTEROL
     Dosage: 500/20 ONCE DAILY
     Dates: start: 20100721
  2. FAMOTIDINE [Concomitant]
     Indication: PRODUCT USED FOR UNKNOWN INDICATION
  3. CELEBREX [Concomitant]
     Indication: PRODUCT USED FOR UNKNOWN INDICATION
  4. VERAPAMIL HCL [Concomitant]
     Indication: BLOOD PRESSURE
  5. DIOVAN [Concomitant]
     Indication: BLOOD PRESSURE
  6. TEMAZEPAM [Concomitant]
     Indication: INSOMNIA

REACTIONS (2)
  - BACK PAIN [None]
  - MYALGIA [None]
